FAERS Safety Report 21621330 (Version 1)
Quarter: 2022Q4

REPORT INFORMATION
  Report Type: Spontaneous
  Country: US (occurrence: US)
  Receive Date: 20221121
  Receipt Date: 20221121
  Transmission Date: 20230113
  Serious: Yes (Other)
  Sender: FDA-Public Use
  Company Number: US-Hikma Pharmaceuticals USA Inc.-US-H14001-22-02731

PATIENT
  Age: 22 Year
  Sex: Female
  Weight: 51.1 kg

DRUGS (21)
  1. ADRIAMYCIN [Suspect]
     Active Substance: DOXORUBICIN HYDROCHLORIDE
     Indication: Desmoplastic small round cell tumour
     Route: 065
     Dates: start: 20221028
  2. ADRIAMYCIN [Suspect]
     Active Substance: DOXORUBICIN HYDROCHLORIDE
     Indication: Metastases to peritoneum
  3. ADRIAMYCIN [Suspect]
     Active Substance: DOXORUBICIN HYDROCHLORIDE
     Indication: Malignant ascites
  4. IFOSFAMIDE [Suspect]
     Active Substance: IFOSFAMIDE
     Indication: Desmoplastic small round cell tumour
     Dosage: 2500 MG/M*2 (3950 MG) IN 0/9% NS, 189 ML FOR OVER TWO HOURS (START INFUSION, RATE OF 94.5 ML/HR)
     Route: 041
     Dates: start: 20221028, end: 20221101
  5. IFOSFAMIDE [Suspect]
     Active Substance: IFOSFAMIDE
     Indication: Metastases to peritoneum
  6. IFOSFAMIDE [Suspect]
     Active Substance: IFOSFAMIDE
     Indication: Malignant ascites
  7. MESNA [Suspect]
     Active Substance: MESNA
     Indication: Desmoplastic small round cell tumour
     Dosage: 500MG/M*2 ONE HOUR BEFORE, FOUR AND EIGHT HOURS AFTER IFOSFAMIDE
     Route: 065
     Dates: start: 20221028
  8. MESNA [Suspect]
     Active Substance: MESNA
     Indication: Metastases to peritoneum
  9. MESNA [Suspect]
     Active Substance: MESNA
     Indication: Malignant ascites
  10. EMEND [Suspect]
     Active Substance: APREPITANT
     Indication: Prophylaxis of nausea and vomiting
     Dosage: 150 MG IN 0.9% NS 275 ML INTERMITTENT INFUSION FOR OVER 20 MINUTES; NEW BAG AT 825 ML/HR RATE
     Route: 041
     Dates: start: 20221028
  11. VINCRISTINE [Suspect]
     Active Substance: VINCRISTINE
     Indication: Desmoplastic small round cell tumour
     Route: 065
     Dates: start: 20221028
  12. VINCRISTINE [Suspect]
     Active Substance: VINCRISTINE
     Indication: Metastases to peritoneum
  13. VINCRISTINE [Suspect]
     Active Substance: VINCRISTINE
     Indication: Malignant ascites
  14. NEULASTA [Suspect]
     Active Substance: PEGFILGRASTIM
     Indication: Desmoplastic small round cell tumour
     Route: 065
     Dates: start: 20221028
  15. NEULASTA [Suspect]
     Active Substance: PEGFILGRASTIM
     Indication: Metastases to peritoneum
  16. NEULASTA [Suspect]
     Active Substance: PEGFILGRASTIM
     Indication: Malignant ascites
  17. ZOFRAN [Suspect]
     Active Substance: ONDANSETRON HYDROCHLORIDE
     Indication: Premedication
     Dosage: UNKNOWN
     Route: 065
  18. DEXAMETHASONE [Suspect]
     Active Substance: DEXAMETHASONE
     Indication: Premedication
     Route: 065
  19. DEXAMETHASONE [Suspect]
     Active Substance: DEXAMETHASONE
     Route: 065
  20. ALBUMIN HUMAN [Suspect]
     Active Substance: ALBUMIN HUMAN
     Indication: Prophylaxis
     Route: 042
  21. THIAMINE [Suspect]
     Active Substance: THIAMINE
     Indication: Prophylaxis
     Route: 048

REACTIONS (11)
  - Neurotoxicity [Recovering/Resolving]
  - Drug interaction [Not Recovered/Not Resolved]
  - Slow speech [Not Recovered/Not Resolved]
  - Muscle twitching [Unknown]
  - Tremor [Unknown]
  - Gait disturbance [Unknown]
  - Lethargy [Unknown]
  - Crying [Unknown]
  - Somnolence [Unknown]
  - Speech disorder developmental [Unknown]
  - Vomiting [Unknown]

NARRATIVE: CASE EVENT DATE: 20221029
